FAERS Safety Report 7483660-0 (Version None)
Quarter: 2011Q2

REPORT INFORMATION
  Report Type: 
  Country: None (occurrence: None)
  Receive Date: 20110517
  Receipt Date: 20110514
  Transmission Date: 20111010
  Serious: No
  Sender: FDA-Public Use
  Company Number: US-PFIZER INC-2011103872

PATIENT
  Sex: Female

DRUGS (1)
  1. ADVIL LIQUI-GELS [Suspect]
     Indication: BACK INJURY
     Dosage: FOUR TABLETS FOUR TIMES A DAY
     Route: 048
     Dates: start: 20110401, end: 20110513

REACTIONS (2)
  - OVERDOSE [None]
  - MENORRHAGIA [None]
